FAERS Safety Report 11091749 (Version 1)
Quarter: 2015Q2

REPORT INFORMATION
  Report Type: Spontaneous
  Country: US (occurrence: US)
  Receive Date: 20150505
  Receipt Date: 20150505
  Transmission Date: 20150821
  Serious: No
  Sender: FDA-Public Use
  Company Number: US-CELGENEUS-USA-2015036564

PATIENT

DRUGS (2)
  1. OTEZLA [Suspect]
     Active Substance: APREMILAST
     Indication: PRODUCT USED FOR UNKNOWN INDICATION
     Route: 065
     Dates: end: 201501
  2. OTEZLA [Suspect]
     Active Substance: APREMILAST
     Route: 065
     Dates: start: 20150324

REACTIONS (2)
  - Headache [Unknown]
  - Diarrhoea [Unknown]
